FAERS Safety Report 7155169-5 (Version None)
Quarter: 2010Q4

REPORT INFORMATION
  Report Type: 
  Country: None (occurrence: None)
  Receive Date: 20101214
  Receipt Date: 20100823
  Transmission Date: 20110411
  Serious: Yes (Other)
  Sender: FDA-Public Use
  Company Number: US-AMGEN-QUU317199

PATIENT

DRUGS (7)
  1. ENBREL [Suspect]
     Indication: RHEUMATOID ARTHRITIS
     Dosage: 50 MG, QWK
     Route: 058
     Dates: start: 20070101, end: 20080919
  2. METHOTREXATE [Suspect]
     Dosage: 15 MG, QWK
     Route: 048
     Dates: start: 20060101, end: 20080919
  3. CELECOXIB [Concomitant]
     Dosage: 200 MG, BID
     Route: 048
     Dates: start: 20080710, end: 20081118
  4. ESCITALOPRAM [Concomitant]
     Dosage: 10 MG, QD
     Route: 048
     Dates: start: 20080101
  5. PREGABALIN [Concomitant]
     Dosage: 15 MG, TID
     Route: 048
     Dates: start: 20080101
  6. FOLIC ACID [Concomitant]
     Dosage: UNK UNK, UNK
     Route: 048
     Dates: start: 20080101
  7. ATENOLOL [Concomitant]
     Dosage: UNK UNK, UNK
     Route: 048
     Dates: start: 20080101

REACTIONS (3)
  - BURSITIS [None]
  - DIFFUSE LARGE B-CELL LYMPHOMA [None]
  - RHEUMATOID ARTHRITIS [None]
